FAERS Safety Report 7460785-7 (Version None)
Quarter: 2011Q2

REPORT INFORMATION
  Report Type: 
  Country: None (occurrence: None)
  Receive Date: 20110505
  Receipt Date: 20110429
  Transmission Date: 20111010
  Serious: Yes (Other)
  Sender: FDA-Public Use
  Company Number: FR-PFIZER INC-2011056179

PATIENT
  Age: 60 Year
  Sex: Female

DRUGS (4)
  1. LYRICA [Suspect]
     Indication: FIBROMYALGIA
     Dosage: 25 MG, 1X/DAY
     Dates: start: 20100701, end: 20100901
  2. CALCIUM [Concomitant]
     Dosage: UNK
  3. LYRICA [Suspect]
     Indication: DYSKINESIA
  4. ACETAMINOPHEN [Concomitant]
     Indication: FIBROMYALGIA
     Dosage: UNK

REACTIONS (5)
  - ECZEMA [None]
  - PRURITUS [None]
  - EYELID CYST [None]
  - MELANOCYTIC NAEVUS [None]
  - VITREOUS DETACHMENT [None]
